FAERS Safety Report 12659733 (Version 2)
Quarter: 2017Q2

REPORT INFORMATION
  Report Type: Spontaneous
  Country: US (occurrence: US)
  Receive Date: 20160817
  Receipt Date: 20170510
  Transmission Date: 20170830
  Serious: No
  Sender: FDA-Public Use
  Company Number: US-CELGENEUS-USA-2016083725

PATIENT
  Sex: Male

DRUGS (13)
  1. TALTZ [Concomitant]
     Active Substance: IXEKIZUMAB
     Indication: PRODUCT USED FOR UNKNOWN INDICATION
     Route: 065
     Dates: start: 20160818
  2. AVOMINE [Concomitant]
     Active Substance: PROMETHAZINE TEOCLATE
     Indication: PRODUCT USED FOR UNKNOWN INDICATION
     Route: 065
     Dates: start: 20160606, end: 20160714
  3. TRIAMCINOLONE [Concomitant]
     Active Substance: TRIAMCINOLONE
     Indication: PRODUCT USED FOR UNKNOWN INDICATION
  4. OTEZLA [Suspect]
     Active Substance: APREMILAST
     Indication: PSORIATIC ARTHROPATHY
  5. DIFLUCAN [Concomitant]
     Active Substance: FLUCONAZOLE
     Indication: PRODUCT USED FOR UNKNOWN INDICATION
  6. DIFLUCAN [Concomitant]
     Active Substance: FLUCONAZOLE
     Indication: ONYCHOMYCOSIS
     Dosage: 200 MILLIGRAM
     Route: 048
     Dates: start: 20160512, end: 20160714
  7. AVOMINE [Concomitant]
     Active Substance: PROMETHAZINE TEOCLATE
     Indication: PRODUCT USED FOR UNKNOWN INDICATION
  8. OTEZLA [Suspect]
     Active Substance: APREMILAST
     Indication: PSORIASIS
     Dosage: 60 MILLIGRAM
     Route: 048
     Dates: start: 20160614, end: 20160818
  9. VECTICAL [Concomitant]
     Active Substance: CALCITRIOL
     Indication: PRODUCT USED FOR UNKNOWN INDICATION
     Dosage: 3 MCG/MG
     Route: 065
     Dates: start: 20150608, end: 20160512
  10. METHOTREXATE. [Concomitant]
     Active Substance: METHOTREXATE
     Indication: PRODUCT USED FOR UNKNOWN INDICATION
     Route: 065
     Dates: start: 20150608, end: 20160512
  11. TALTZ [Concomitant]
     Active Substance: IXEKIZUMAB
     Indication: PRODUCT USED FOR UNKNOWN INDICATION
  12. TRIAMCINOLONE [Concomitant]
     Active Substance: TRIAMCINOLONE
     Indication: PRODUCT USED FOR UNKNOWN INDICATION
     Dosage: 0.1
     Route: 061
     Dates: start: 20160714
  13. CLOBETASOL [Concomitant]
     Active Substance: CLOBETASOL
     Indication: PRODUCT USED FOR UNKNOWN INDICATION
     Dosage: 0.052
     Route: 065
     Dates: start: 20150608, end: 20160512

REACTIONS (5)
  - Nausea [Recovered/Resolved]
  - Psoriasis [Not Recovered/Not Resolved]
  - Fungal infection [Unknown]
  - Headache [Recovered/Resolved]
  - Diarrhoea [Recovered/Resolved]
